FAERS Safety Report 7796969-8 (Version None)
Quarter: 2011Q4

REPORT INFORMATION
  Report Type: 
  Country: None (occurrence: None)
  Receive Date: 20111005
  Receipt Date: 20111005
  Transmission Date: 20120403
  Serious: Yes (Other)
  Sender: FDA-Public Use
  Company Number: None

PATIENT
  Sex: Female
  Weight: 83.461 kg

DRUGS (2)
  1. REMERON SOLTAB [Suspect]
     Indication: DEPRESSION
     Dosage: 45 MG
     Route: 048
     Dates: start: 20010201, end: 20111005
  2. MIZIRTAPINE [Concomitant]

REACTIONS (11)
  - RESTLESSNESS [None]
  - FIBROMYALGIA [None]
  - OSTEOARTHRITIS [None]
  - INSOMNIA [None]
  - NIGHTMARE [None]
  - HEART RATE INCREASED [None]
  - MUSCULOSKELETAL STIFFNESS [None]
  - ANXIETY [None]
  - ASTHENIA [None]
  - CONFUSIONAL STATE [None]
  - WEIGHT INCREASED [None]
